FAERS Safety Report 13635665 (Version 1)
Quarter: 2017Q2

REPORT INFORMATION
  Report Type: Spontaneous
  Country: US (occurrence: US)
  Receive Date: 20170531
  Receipt Date: 20170531
  Transmission Date: 20170830
  Serious: No
  Sender: FDA-Public Use
  Company Number: US-ASTELLAS-1736818

PATIENT
  Sex: Female

DRUGS (13)
  1. OMEPRAZOLE. [Concomitant]
     Active Substance: OMEPRAZOLE
     Route: 065
  2. MIRTAZAPIN [Concomitant]
     Active Substance: MIRTAZAPINE
     Route: 065
  3. FUROSEMIDE. [Concomitant]
     Active Substance: FUROSEMIDE
     Route: 065
  4. ONDANSETRON [Concomitant]
     Active Substance: ONDANSETRON
     Route: 065
  5. ALPRAZOLAM. [Concomitant]
     Active Substance: ALPRAZOLAM
     Route: 065
  6. LEVOFLOXACIN. [Concomitant]
     Active Substance: LEVOFLOXACIN
     Route: 065
  7. METHYLPREDNISOLONE DOSEPAK [Concomitant]
     Route: 065
  8. POTASSIUM CHLORIDE. [Concomitant]
     Active Substance: POTASSIUM CHLORIDE
  9. TARCEVA [Suspect]
     Active Substance: ERLOTINIB HYDROCHLORIDE
     Indication: LUNG NEOPLASM MALIGNANT
     Route: 048
     Dates: start: 20160401
  10. ESCITALOPRAM [Concomitant]
     Active Substance: ESCITALOPRAM OXALATE
     Route: 065
  11. WARFARIN [Concomitant]
     Active Substance: WARFARIN
     Route: 065
  12. ESCITALOPRAM [Concomitant]
     Active Substance: ESCITALOPRAM OXALATE
     Route: 065
  13. FLUZONE (UNITED STATES) [Concomitant]
     Dosage: 15-16
     Route: 065

REACTIONS (3)
  - Diarrhoea [Not Recovered/Not Resolved]
  - Fatigue [Not Recovered/Not Resolved]
  - Decreased appetite [Unknown]
